FAERS Safety Report 6121308-8 (Version None)
Quarter: 2009Q1

REPORT INFORMATION
  Report Type: 
  Country: None (occurrence: None)
  Receive Date: 20090312
  Receipt Date: 20090227
  Transmission Date: 20090719
  Serious: Yes (Hospitalization)
  Sender: FDA-Public Use
  Company Number: 2009000225

PATIENT
  Age: 65 Year
  Sex: Male
  Weight: 60 kg

DRUGS (6)
  1. ERLOTINIB (ERLOTINIB) (TABLET) (ERLOTINIB) [Suspect]
     Indication: LUNG ADENOCARCINOMA
     Dosage: (150 MG, QD), ORAL
     Route: 048
     Dates: start: 20080623, end: 20080801
  2. CLOBAZAM (CLOBAZAM) [Concomitant]
  3. OMEPRAZOLE [Concomitant]
  4. CANDESARTAN CILEXETIL [Concomitant]
  5. PREDNISOLONE [Concomitant]
  6. HUMACART 3/7 (INSULIN HUMAN) [Concomitant]

REACTIONS (3)
  - DELUSION [None]
  - DIARRHOEA [None]
  - FOLLICULITIS [None]
